FAERS Safety Report 7919115-6 (Version None)
Quarter: 2011Q4

REPORT INFORMATION
  Report Type: 
  Country: None (occurrence: None)
  Receive Date: 20111116
  Receipt Date: 20111107
  Transmission Date: 20120403
  Serious: Yes (Other)
  Sender: FDA-Public Use
  Company Number: US-AMGEN-USASP2011058094

PATIENT
  Age: 43 Year
  Sex: Male

DRUGS (1)
  1. SENSIPAR [Suspect]
     Indication: HYPERPARATHYROIDISM SECONDARY
     Dates: start: 20110801, end: 20110901

REACTIONS (4)
  - DYSPNOEA [None]
  - ASTHENIA [None]
  - NAUSEA [None]
  - BLOOD PARATHYROID HORMONE INCREASED [None]
